FAERS Safety Report 13349559 (Version 1)
Quarter: 2017Q1

REPORT INFORMATION
  Report Type: Spontaneous
  Country: US (occurrence: US)
  Receive Date: 20170317
  Receipt Date: 20170317
  Transmission Date: 20170428
  Serious: Yes (Other)
  Sender: FDA-Public Use
  Company Number: None

PATIENT
  Age: 51 Year
  Sex: Female
  Weight: 104.8 kg

DRUGS (18)
  1. CALCIUM [Concomitant]
     Active Substance: CALCIUM
  2. DOXYCYCLINE. [Concomitant]
     Active Substance: DOXYCYCLINE
  3. FISH OIL [Concomitant]
     Active Substance: FISH OIL
  4. CHROMIUM [Concomitant]
     Active Substance: CHROMIC CHLORIDE\CHROMIUM
  5. ZINC. [Concomitant]
     Active Substance: ZINC
  6. XELJANZ [Suspect]
     Active Substance: TOFACITINIB CITRATE
     Indication: RHEUMATOID ARTHRITIS
     Dosage: ?          QUANTITY:1 TABLET(S);?
     Route: 048
     Dates: start: 20170202, end: 20170217
  7. MAGNESIUM [Concomitant]
     Active Substance: MAGNESIUM
  8. VIT B BLEND [Concomitant]
  9. VITAMIN C [Concomitant]
     Active Substance: ASCORBIC ACID
  10. VITAMIN D3 [Concomitant]
     Active Substance: CHOLECALCIFEROL
  11. SELENIUM [Concomitant]
     Active Substance: SELENIUM
  12. TRAMADOL. [Concomitant]
     Active Substance: TRAMADOL
  13. AMITRIPTYLINE [Concomitant]
     Active Substance: AMITRIPTYLINE
  14. CYCLOBENZAPRINE [Concomitant]
     Active Substance: CYCLOBENZAPRINE
  15. PLAQUENIL [Concomitant]
     Active Substance: HYDROXYCHLOROQUINE SULFATE
  16. PROGESTERONE CREAM [Concomitant]
     Active Substance: PROGESTERONE
  17. WESTHROID [Concomitant]
     Active Substance: THYROGLOBULIN
  18. VITAMIN B12 [Concomitant]
     Active Substance: CYANOCOBALAMIN

REACTIONS (11)
  - Dizziness [None]
  - Hypoaesthesia [None]
  - Dyspnoea [None]
  - Hypersensitivity [None]
  - Malaise [None]
  - Skin discolouration [None]
  - Hypotension [None]
  - Reaction to food additive [None]
  - Food allergy [None]
  - Nasal obstruction [None]
  - Swelling face [None]

NARRATIVE: CASE EVENT DATE: 20170208
